FAERS Safety Report 12495173 (Version 1)
Quarter: 2016Q2

REPORT INFORMATION
  Report Type: Report from Study
  Country: CA (occurrence: CA)
  Receive Date: 20160624
  Receipt Date: 20160624
  Transmission Date: 20160815
  Serious: Yes (Hospitalization, Other)
  Sender: FDA-Public Use
  Company Number: PHHY2012CA115890

PATIENT
  Age: 70 Year
  Sex: Male

DRUGS (1)
  1. SANDOSTATIN LAR DEPOT [Suspect]
     Active Substance: OCTREOTIDE ACETATE
     Indication: ACROMEGALY
     Dosage: 40 MG, QMO, ONCE A MONTH
     Route: 030
     Dates: start: 20021031

REACTIONS (11)
  - Bowel movement irregularity [Unknown]
  - Intestinal obstruction [Unknown]
  - Absent bowel movement [Recovering/Resolving]
  - Abdominal pain [Unknown]
  - Blood pressure systolic increased [Unknown]
  - Cataract [Unknown]
  - Glaucoma [Unknown]
  - Crohn^s disease [Unknown]
  - Blood pressure diastolic increased [Unknown]
  - Constipation [Unknown]
  - Injection site mass [Not Recovered/Not Resolved]

NARRATIVE: CASE EVENT DATE: 20140403
